FAERS Safety Report 19516418 (Version 1)
Quarter: 2021Q3

REPORT INFORMATION
  Report Type: Spontaneous
  Country: US (occurrence: US)
  Receive Date: 20210709
  Receipt Date: 20210709
  Transmission Date: 20211014
  Serious: No
  Sender: FDA-Public Use
  Company Number: US-ASTELLAS-2020US034149

PATIENT
  Age: 80 Year
  Sex: Male

DRUGS (1)
  1. MYRBETRIQ [Suspect]
     Active Substance: MIRABEGRON
     Indication: PRODUCT USED FOR UNKNOWN INDICATION
     Route: 065
     Dates: start: 20200926

REACTIONS (5)
  - Restlessness [Recovering/Resolving]
  - Hypoacusis [Recovering/Resolving]
  - Speech disorder [Unknown]
  - Insomnia [Recovering/Resolving]
  - Dry mouth [Unknown]
